FAERS Safety Report 5802364-0 (Version None)
Quarter: 2008Q3

REPORT INFORMATION
  Report Type: 
  Country: None (occurrence: None)
  Receive Date: 20080702
  Receipt Date: 20080626
  Transmission Date: 20090109
  Serious: Yes (Other)
  Sender: FDA-Public Use
  Company Number: 062-21880-07091372

PATIENT
  Age: 44 Year
  Sex: Female
  Weight: 54 kg

DRUGS (3)
  1. REVLIMID [Suspect]
     Indication: 5Q MINUS SYNDROME
     Dosage: 10 MG, DAILY, ORAL; 5 MG, ORAL
     Route: 048
     Dates: start: 20070904
  2. EXJADE (DEFERASIROX) (500 MILLIGRAM) [Concomitant]
  3. BACTRIM [Concomitant]

REACTIONS (4)
  - BLOOD CREATININE INCREASED [None]
  - BLOOD POTASSIUM DECREASED [None]
  - CYSTITIS NONINFECTIVE [None]
  - THYROIDITIS SUBACUTE [None]
